FAERS Safety Report 7894718-6 (Version None)
Quarter: 2011Q4

REPORT INFORMATION
  Report Type: 
  Country: None (occurrence: None)
  Receive Date: 20111106
  Receipt Date: 20110818
  Transmission Date: 20120403
  Serious: No
  Sender: FDA-Public Use
  Company Number: US-AMGEN-USASP2011042138

PATIENT
  Sex: Female

DRUGS (16)
  1. ASPIRIN [Concomitant]
     Dosage: UNK MG, UNK
  2. LORTAB [Concomitant]
     Dosage: UNK
  3. LIPITOR [Concomitant]
     Dosage: UNK
  4. NAPROXEN [Concomitant]
     Dosage: UNK
  5. METHOTREXATE [Concomitant]
     Dosage: UNK
  6. CYMBALTA [Concomitant]
     Dosage: UNK
  7. PLAQUENIL [Concomitant]
     Dosage: UNK
  8. FOSAMAX [Concomitant]
     Dosage: UNK
  9. LYRICA [Concomitant]
     Dosage: UNK
  10. TRAZODONE HYDROCHLORIDE [Concomitant]
     Dosage: UNK
  11. ENBREL [Suspect]
     Indication: RHEUMATOID ARTHRITIS
     Dosage: 50 MG, QWK
  12. VIMOVO [Concomitant]
     Dosage: UNK
  13. PRILOSEC [Concomitant]
     Dosage: UNK
  14. DIOVAN [Concomitant]
     Dosage: UNK
  15. AMBIEN [Concomitant]
     Dosage: UNK
  16. ESOMEPRAZOLE [Concomitant]

REACTIONS (3)
  - PALLOR [None]
  - HAEMORRHAGE [None]
  - CONTUSION [None]
